FAERS Safety Report 7909197-X (Version None)
Quarter: 2011Q4

REPORT INFORMATION
  Report Type: 
  Country: None (occurrence: None)
  Receive Date: 20111111
  Receipt Date: 20110727
  Transmission Date: 20120403
  Serious: No
  Sender: FDA-Public Use
  Company Number: US-GLAXOSMITHKLINE-A0938540A

PATIENT
  Sex: Male

DRUGS (5)
  1. LOSARTAN [Concomitant]
  2. PENTOXIFYLLINE [Concomitant]
  3. CARVEDILOL [Suspect]
     Indication: CARDIOMYOPATHY
     Dosage: 3.125MG TWICE PER DAY
     Route: 048
     Dates: start: 20110301, end: 20110401
  4. COREG CR [Suspect]
     Indication: CARDIOMYOPATHY
     Dosage: 30MG PER DAY
     Route: 048
     Dates: start: 20110101
  5. PEPCID [Concomitant]

REACTIONS (5)
  - GASTROINTESTINAL PAIN [None]
  - RASH [None]
  - GASTROINTESTINAL DISORDER [None]
  - PROCTALGIA [None]
  - ABDOMINAL PAIN UPPER [None]
